FAERS Safety Report 6894805-5 (Version None)
Quarter: 2010Q3

REPORT INFORMATION
  Report Type: 
  Country: None (occurrence: None)
  Receive Date: 20100802
  Receipt Date: 20100722
  Transmission Date: 20110219
  Serious: Yes (Hospitalization)
  Sender: FDA-Public Use
  Company Number: FR-SANOFI-AVENTIS-2010SA042935

PATIENT
  Age: 55 Year
  Sex: Male

DRUGS (6)
  1. PLAVIX [Suspect]
     Indication: ATRIAL FIBRILLATION
     Route: 048
  2. FLECAINIDE ACETATE [Concomitant]
     Indication: PRODUCT USED FOR UNKNOWN INDICATION
  3. ALPRAZOLAM [Concomitant]
     Indication: PRODUCT USED FOR UNKNOWN INDICATION
  4. BISOPROLOL [Concomitant]
     Indication: PRODUCT USED FOR UNKNOWN INDICATION
  5. ESCITALOPRAM OXALATE [Concomitant]
     Indication: PRODUCT USED FOR UNKNOWN INDICATION
  6. ESOMEPRAZOLE MAGNESIUM [Concomitant]
     Indication: PRODUCT USED FOR UNKNOWN INDICATION

REACTIONS (5)
  - COLITIS ISCHAEMIC [None]
  - HYPOTHERMIA [None]
  - MELAENA [None]
  - RECTAL HAEMORRHAGE [None]
  - STAPHYLOCOCCAL SEPSIS [None]
